FAERS Safety Report 9421713 (Version 6)
Quarter: 2013Q4

REPORT INFORMATION
  Report Type: Spontaneous
  Country: US (occurrence: US)
  Receive Date: 20130726
  Receipt Date: 20131031
  Transmission Date: 20140711
  Serious: Yes (Other)
  Sender: FDA-Public Use
  Company Number: US-009507513-1307USA010639

PATIENT
  Age: 51 Year
  Sex: Male

DRUGS (9)
  1. PEG-INTRON [Suspect]
     Indication: HEPATITIS C
     Dosage: REDIPEN
     Dates: start: 20120101, end: 20120201
  2. PEG-INTRON [Suspect]
     Dosage: REDIPEN
     Dates: start: 20120401, end: 20120501
  3. PEG-INTRON [Suspect]
     Dosage: REDIPEN
     Dates: start: 20130720
  4. REBETOL [Suspect]
     Indication: HEPATITIS C
     Dosage: UNK
     Route: 048
     Dates: start: 20120101, end: 20120201
  5. REBETOL [Suspect]
     Dosage: UNK
     Route: 048
     Dates: start: 20120401, end: 20120501
  6. REBETOL [Suspect]
     Dosage: UNK
     Route: 048
     Dates: start: 20130720
  7. TELAPREVIR [Suspect]
     Indication: HEPATITIS C
     Dosage: UNK
     Dates: start: 20120101, end: 20120201
  8. TELAPREVIR [Suspect]
     Dosage: UNK
     Dates: start: 20120401, end: 20120501
  9. TELAPREVIR [Suspect]
     Dosage: UNK
     Dates: start: 20130720

REACTIONS (8)
  - Convulsion [Unknown]
  - Drug ineffective [Unknown]
  - Muscle tightness [Unknown]
  - Speech disorder [Unknown]
  - Depression [Unknown]
  - Chills [Unknown]
  - Fatigue [Unknown]
  - Depression [Unknown]
